FAERS Safety Report 7465593-9 (Version None)
Quarter: 2011Q1

REPORT INFORMATION
  Report Type: 
  Country: None (occurrence: None)
  Receive Date: 20110302
  Receipt Date: 20100928
  Transmission Date: 20110831
  Serious: Yes (Hospitalization)
  Sender: FDA-Public Use
  Company Number: 163-21880-10080496

PATIENT
  Age: 63 Year
  Sex: Male

DRUGS (7)
  1. SIMVASTATIN [Concomitant]
  2. LOTREL [Concomitant]
  3. REVLIMID [Suspect]
     Indication: MULTIPLE MYELOMA
     Dosage: 25 MG, DAILY FOR 21 DAYS ON, 7 DAYS OFF, PO
     Route: 048
     Dates: start: 20100924
  4. REVLIMID [Suspect]
     Indication: MULTIPLE MYELOMA
     Dosage: 25 MG, DAILY FOR 21 DAYS ON, 7 DAYS OFF, PO
     Route: 048
     Dates: start: 20100617, end: 20100823
  5. ANTIBIOTICS (ANTIBIOTICS) [Concomitant]
  6. COUMADIN [Concomitant]
  7. METFORMIN (METFORMIN) [Concomitant]

REACTIONS (6)
  - DYSPNOEA [None]
  - CARDIAC DISORDER [None]
  - STAPHYLOCOCCAL INFECTION [None]
  - TREMOR [None]
  - PYREXIA [None]
  - PULMONARY EMBOLISM [None]
